FAERS Safety Report 24608270 (Version 1)
Quarter: 2024Q4

REPORT INFORMATION
  Report Type: Spontaneous
  Country: AU (occurrence: AU)
  Receive Date: 20241112
  Receipt Date: 20241112
  Transmission Date: 20250114
  Serious: Yes (Hospitalization)
  Sender: MYLAN
  Company Number: AU-MYLANLABS-2024M1100473

PATIENT
  Sex: Female

DRUGS (5)
  1. OLANZAPINE [Suspect]
     Active Substance: OLANZAPINE
     Indication: Perinatal depression
     Dosage: 5 MILLIGRAM, TID
     Route: 065
  2. QUETIAPINE [Suspect]
     Active Substance: QUETIAPINE
     Indication: Perinatal depression
     Dosage: 50 MILLIGRAM, QD (MODIFIED RELEASE: AT NIGHT)
     Route: 065
  3. DOSULEPIN HYDROCHLORIDE [Suspect]
     Active Substance: DOTHIEPIN HYDROCHLORIDE
     Indication: Perinatal depression
     Dosage: 75 MILLIGRAM, QD (AT NIGHT)
     Route: 065
  4. LITHIUM [Suspect]
     Active Substance: LITHIUM
     Indication: Perinatal depression
     Dosage: UNK
     Route: 065
  5. METHYLPHENIDATE [Concomitant]
     Active Substance: METHYLPHENIDATE
     Indication: Attention deficit hyperactivity disorder
     Dosage: UNK
     Route: 065

REACTIONS (1)
  - Drug ineffective [Unknown]
